FAERS Safety Report 9530636 (Version 3)
Quarter: 2013Q3

REPORT INFORMATION
  Report Type: Report from Study
  Country: US (occurrence: US)
  Receive Date: 20130918
  Receipt Date: 20130926
  Transmission Date: 20140515
  Serious: Yes (Hospitalization)
  Sender: FDA-Public Use
  Company Number: US-AMGEN-USACT2013064467

PATIENT
  Age: 76 Year
  Sex: Female
  Weight: 82.27 kg

DRUGS (16)
  1. DARBEPOETIN ALFA [Suspect]
     Indication: NEPHROGENIC ANAEMIA
     Dosage: Q4WK
     Route: 058
     Dates: start: 20130510
  2. PLAVIX [Concomitant]
     Dosage: UNK
     Dates: start: 20071011
  3. NEURONTIN [Concomitant]
     Dosage: UNK
     Dates: start: 20121127
  4. NOVOLOG [Concomitant]
     Dosage: UNK 70/30
     Dates: start: 20070626
  5. LIPITOR [Concomitant]
     Dosage: UNK
     Dates: start: 20080521
  6. ALLOPURINOL [Concomitant]
     Dosage: UNK
     Dates: start: 20110728
  7. KLOR-CON [Concomitant]
     Dosage: UNK
     Dates: start: 20070111
  8. ASA [Concomitant]
     Dosage: UNK
     Dates: start: 20071011
  9. COREG [Concomitant]
     Dosage: UNK
  10. AZOR                               /00595201/ [Concomitant]
     Dosage: UNK
  11. POTASSIUM CHLORIDE [Concomitant]
     Dosage: UNK
  12. LISINOPRIL [Concomitant]
     Dosage: UNK
  13. LASIX                              /00032601/ [Concomitant]
     Dosage: UNK
  14. HYDRALAZINE [Concomitant]
     Dosage: UNK
  15. NOVOLIN R [Concomitant]
     Dosage: UNK
  16. CLONIDINE [Concomitant]
     Dosage: UNK

REACTIONS (1)
  - Chest pain [Recovered/Resolved]
